FAERS Safety Report 15997873 (Version 1)
Quarter: 2019Q1

REPORT INFORMATION
  Report Type: Spontaneous
  Country: None (occurrence: US)
  Receive Date: 20190222
  Receipt Date: 20190222
  Transmission Date: 20190418
  Serious: No
  Sender: FDA-Public Use
  Company Number: US-MEDAC PHARMA, INC.-2063093

PATIENT

DRUGS (7)
  1. RASUVO [Suspect]
     Active Substance: METHOTREXATE SODIUM
     Indication: RHEUMATOID ARTHRITIS
     Route: 051
  2. SULFASALAZINE. [Suspect]
     Active Substance: SULFASALAZINE
  3. METHOTREXATE. [Suspect]
     Active Substance: METHOTREXATE
  4. SIMPONI [Suspect]
     Active Substance: GOLIMUMAB
  5. RITUXAN [Suspect]
     Active Substance: RITUXIMAB
  6. HUMIRA [Suspect]
     Active Substance: ADALIMUMAB
  7. ORENCIA [Suspect]
     Active Substance: ABATACEPT

REACTIONS (3)
  - Rheumatoid arthritis [Unknown]
  - Drug ineffective [Unknown]
  - Gastrointestinal disorder [Unknown]
